FAERS Safety Report 10076922 (Version 4)
Quarter: 2014Q3

REPORT INFORMATION
  Report Type: Report from Study
  Country: US (occurrence: US)
  Receive Date: 20140414
  Receipt Date: 20140703
  Transmission Date: 20150326
  Serious: Yes (Hospitalization, Other)
  Sender: FDA-Public Use
  Company Number: US-BAYER-2014-038260

PATIENT
  Age: 67 Year
  Sex: Male
  Weight: 87.35 kg

DRUGS (22)
  1. SORAFENIB (RAF KINASE INHIBITOR) [Suspect]
     Active Substance: SORAFENIB
     Indication: HEPATOCELLULAR CARCINOMA
     Dosage: 200 MG DAILY
     Route: 048
     Dates: end: 20140401
  2. NULYTELY [Concomitant]
     Active Substance: POLYETHYLENE GLYCOL 3350\POTASSIUM CHLORIDE\SODIUM BICARBONATE\SODIUM CHLORIDE
  3. SARNA [Concomitant]
     Active Substance: CAMPHOR (NATURAL)\MENTHOL\PRAMOXINE HYDROCHLORIDE
     Indication: PRURITUS
     Dosage: 1 APPLICATION 0.5% PRN
  4. LOMOTIL [Concomitant]
     Active Substance: ATROPINE SULFATE\DIPHENOXYLATE HYDROCHLORIDE
  5. ZOFRAN [Concomitant]
     Active Substance: ONDANSETRON HYDROCHLORIDE
     Indication: VOMITING
  6. FOLFOX REGIMEN [Suspect]
     Active Substance: FLUOROURACIL\LEUCOVORIN CALCIUM\OXALIPLATIN
     Indication: HEPATOCELLULAR CARCINOMA
     Dosage: UNK
     Route: 042
     Dates: start: 20131203, end: 20140625
  7. LAMOTRIGINE. [Concomitant]
     Active Substance: LAMOTRIGINE
     Dosage: 25MG AND 200MG, QD
     Route: 048
  8. MICARDIS HCT [Concomitant]
     Active Substance: HYDROCHLOROTHIAZIDE\TELMISARTAN
  9. OXYCODONE [Concomitant]
     Active Substance: OXYCODONE
     Indication: PAIN
     Dosage: 0.5 Q6H PRN
  10. UREA. [Concomitant]
     Active Substance: UREA
  11. LAMICTAL [Concomitant]
     Active Substance: LAMOTRIGINE
  12. NYSTATIN. [Concomitant]
     Active Substance: NYSTATIN
     Dosage: 5ML (100000/ML) QID
  13. NITROGLYCERIN. [Concomitant]
     Active Substance: NITROGLYCERIN
  14. VITAMIN B6 [Concomitant]
     Active Substance: PYRIDOXINE HYDROCHLORIDE
  15. ACIPHEX [Concomitant]
     Active Substance: RABEPRAZOLE SODIUM
     Dosage: DAILY DOSE 20 MG
  16. ESCITALOPRAM [Concomitant]
     Active Substance: ESCITALOPRAM OXALATE
     Dosage: 1 1/2 DF
     Route: 048
  17. SORAFENIB (RAF KINASE INHIBITOR) [Suspect]
     Active Substance: SORAFENIB
     Indication: HEPATOCELLULAR CARCINOMA
     Dosage: 200 MG DAILY
     Route: 048
     Dates: start: 20130618, end: 20140227
  18. LEXAPRO [Concomitant]
     Active Substance: ESCITALOPRAM OXALATE
  19. PROCTOFOAM HC [Concomitant]
     Active Substance: HYDROCORTISONE ACETATE\PRAMOXINE HYDROCHLORIDE
  20. ZOFRAN [Concomitant]
     Active Substance: ONDANSETRON HYDROCHLORIDE
     Indication: NAUSEA
     Dosage: 1DF Q8H PRN
     Route: 048
  21. ALBUTEROL. [Concomitant]
     Active Substance: ALBUTEROL
     Dosage: 90 MCG HFA AER AD
  22. LACTULOSE. [Concomitant]
     Active Substance: LACTULOSE
     Dosage: 15ML (10G/15ML SOLUT) BID
     Route: 048

REACTIONS (23)
  - Calculus ureteric [None]
  - Confusional state [None]
  - Atrial tachycardia [None]
  - Hypotension [None]
  - Pyrexia [None]
  - Vomiting [None]
  - Diarrhoea [None]
  - Aspartate aminotransferase increased [None]
  - Urinary tract infection [None]
  - Calculus urinary [None]
  - Clostridium difficile infection [None]
  - Haematuria [None]
  - Lethargy [None]
  - Bilirubin conjugated increased [None]
  - Blood bilirubin increased [None]
  - Pyrexia [None]
  - Flank pain [None]
  - Mental status changes [None]
  - Hypomagnesaemia [None]
  - Anaemia [None]
  - Platelet count decreased [None]
  - Bacteraemia [None]
  - Blood alkaline phosphatase increased [None]

NARRATIVE: CASE EVENT DATE: 20140304
